FAERS Safety Report 6250847-4 (Version None)
Quarter: 2009Q2

REPORT INFORMATION
  Report Type: 
  Country: None (occurrence: None)
  Receive Date: 20090630
  Receipt Date: 20090416
  Transmission Date: 20091009
  Serious: No
  Sender: FDA-Public Use
  Company Number: US-ABBOTT-09P-163-0568859-00

PATIENT
  Sex: Female

DRUGS (10)
  1. ZEMPLAR [Suspect]
     Indication: HYPERPARATHYROIDISM
     Dates: start: 20080929
  2. FELODIPINE [Concomitant]
     Indication: HYPERTENSION
  3. DOXAZOSIN MESYLATE [Concomitant]
     Indication: HYPERTENSION
  4. ASPIRIN [Concomitant]
     Indication: PROPHYLAXIS
  5. SIMVASTATIN [Concomitant]
     Indication: HYPERLIPIDAEMIA
  6. VITAMIN D [Concomitant]
     Indication: HYPERPHOSPHATAEMIA
  7. LASIX [Concomitant]
     Indication: FLUID RETENTION
  8. VITAMIN B-12 [Concomitant]
     Indication: DRUG USE FOR UNKNOWN INDICATION
     Route: 060
  9. SPIRIVA [Concomitant]
     Indication: CHRONIC OBSTRUCTIVE PULMONARY DISEASE
  10. LEXAPRO [Concomitant]
     Indication: ANXIETY

REACTIONS (1)
  - HEADACHE [None]
